FAERS Safety Report 14256801 (Version 1)
Quarter: 2017Q4

REPORT INFORMATION
  Report Type: Report from Study
  Country: US (occurrence: BR)
  Receive Date: 20171206
  Receipt Date: 20171206
  Transmission Date: 20180321
  Serious: Yes (Other)
  Sender: FDA-Public Use
  Company Number: US-SUNOVION-2017SUN005193

PATIENT
  Age: 64 Year
  Sex: Female
  Weight: 84 kg

DRUGS (4)
  1. INDACATEROL [Suspect]
     Active Substance: INDACATEROL
     Indication: PRODUCT USED FOR UNKNOWN INDICATION
     Dosage: UNK, UNK
     Route: 065
  2. FORASEQ [Suspect]
     Active Substance: BUDESONIDE\FORMOTEROL FUMARATE
     Indication: EMPHYSEMA
     Dosage: 1 DF (BUDESONIDE 12 UG, FORMOTEROL FUMARATE 400 UG) QD
     Route: 055
  3. FORASEQ [Suspect]
     Active Substance: BUDESONIDE\FORMOTEROL FUMARATE
     Dosage: 1 DF (BUDESONIDE 12 UG, FORMOTEROL FUMARATE 400 UG) QD
     Route: 055
  4. INDACATEROL [Suspect]
     Active Substance: INDACATEROL
     Dosage: UNK, UNK
     Route: 065

REACTIONS (7)
  - Dysstasia [Unknown]
  - Gait disturbance [Unknown]
  - Malaise [Unknown]
  - Throat irritation [Unknown]
  - Movement disorder [Unknown]
  - Accident [Unknown]
  - Product physical issue [Unknown]

NARRATIVE: CASE EVENT DATE: 20160104
